FAERS Safety Report 5627988-5 (Version None)
Quarter: 2008Q1

REPORT INFORMATION
  Report Type: 
  Country: None (occurrence: None)
  Receive Date: 20080215
  Receipt Date: 20080206
  Transmission Date: 20080703
  Serious: Yes (Other)
  Sender: FDA-Public Use
  Company Number: CA-ELI_LILLY_AND_COMPANY-CA200802001793

PATIENT
  Sex: Female

DRUGS (4)
  1. HUMALOG MIX 75/25 [Suspect]
     Indication: DIABETES MELLITUS
     Dosage: 32 U, EACH EVENING
  2. HUMALOG [Suspect]
     Indication: DIABETES MELLITUS
     Dosage: UNK, AS NEEDED
  3. FRAGMIN [Concomitant]
     Indication: ANTICOAGULANT THERAPY
     Dosage: 10000 U, DAILY (1/D)
     Route: 058
     Dates: start: 20071201
  4. PERCOCET [Concomitant]
     Indication: PAIN
     Dosage: 5/325 MG, UNK
     Route: 048

REACTIONS (2)
  - BLOOD GLUCOSE INCREASED [None]
  - CHEMOTHERAPY [None]
